FAERS Safety Report 5339826-9 (Version None)
Quarter: 2007Q2

REPORT INFORMATION
  Report Type: 
  Country: None (occurrence: None)
  Receive Date: 20070531
  Receipt Date: 20070521
  Transmission Date: 20071010
  Serious: Yes (Hospitalization)
  Sender: FDA-Public Use
  Company Number: US-KINGPHARMUSA00001-K200700621

PATIENT

DRUGS (11)
  1. ALTACE [Suspect]
     Indication: CEREBROVASCULAR ACCIDENT
     Dosage: 5 MG, QD
     Route: 048
     Dates: end: 20070130
  2. ALTACE [Suspect]
     Indication: MYOCARDIAL ISCHAEMIA
  3. FUROSEMIDE [Suspect]
     Indication: MYOCARDIAL ISCHAEMIA
     Dosage: 40 MG, QD
     Route: 048
     Dates: end: 20070119
  4. BENDROFLUMETHIAZIDE [Suspect]
     Indication: CEREBROVASCULAR ACCIDENT
     Dosage: 2.5 MG, QD
     Route: 048
     Dates: end: 20070119
  5. BENDROFLUMETHIAZIDE [Suspect]
     Indication: MYOCARDIAL ISCHAEMIA
  6. CARBAMAZEPINE [Suspect]
     Indication: CONVULSION
     Dosage: 200 MG, BID
     Route: 048
     Dates: end: 20070119
  7. CARBAMAZEPINE [Suspect]
     Dosage: UNK, UNK
     Route: 048
     Dates: start: 20070119
  8. ATORVASTATIN [Concomitant]
     Indication: MYOCARDIAL ISCHAEMIA
     Dosage: 40 MG, QD
     Route: 048
  9. CALCICHEW /00108001/ [Concomitant]
     Dosage: 1 DF, BID
     Route: 048
  10. GLICLAZIDE [Concomitant]
     Indication: DIABETES MELLITUS
     Dosage: 160 MG, BID
     Route: 048
  11. METFORMIN HCL [Concomitant]
     Indication: DIABETES MELLITUS
     Dosage: 500 MG, BID
     Route: 048

REACTIONS (3)
  - CONVULSION [None]
  - HYPONATRAEMIA [None]
  - INAPPROPRIATE ANTIDIURETIC HORMONE SECRETION [None]
